FAERS Safety Report 23903669 (Version 1)
Quarter: 2024Q2

REPORT INFORMATION
  Report Type: Spontaneous
  Country: US (occurrence: US)
  Receive Date: 20240527
  Receipt Date: 20240527
  Transmission Date: 20240716
  Serious: No
  Sender: FDA-Public Use
  Company Number: US-DRL-USA-LIT/USA/24/0007394

PATIENT
  Age: 33 Year
  Sex: Female

DRUGS (6)
  1. DOXORUBICIN [Suspect]
     Active Substance: DOXORUBICIN
     Dosage: COMPLETED 6 CYCLES AT 35 WEEKS GESTATION
     Route: 042
  2. RITUXIMAB [Suspect]
     Active Substance: RITUXIMAB
     Dosage: COMPLETED 6 CYCLES AT 35 WEEKS GESTATION
  3. CYCLOPHOSPHAMIDE [Suspect]
     Active Substance: CYCLOPHOSPHAMIDE
     Dosage: COMPLETED 6 CYCLES AT 35 WEEKS GESTATION
  4. PREDNISONE [Suspect]
     Active Substance: PREDNISONE
     Dosage: COMPLETED 6 CYCLES AT 35 WEEKS GESTATION
  5. ETOPOSIDE [Suspect]
     Active Substance: ETOPOSIDE
     Dosage: COMPLETED 6 CYCLES AT 35 WEEKS GESTATION
  6. VINCRISTINE [Suspect]
     Active Substance: VINCRISTINE
     Dosage: COMPLETED 6 CYCLES AT 35 WEEKS GESTATION

REACTIONS (4)
  - Exposure during pregnancy [Unknown]
  - Mucosal inflammation [Unknown]
  - Product use in unapproved indication [Unknown]
  - Hypertension [Unknown]
